FAERS Safety Report 9549491 (Version 2)
Quarter: 2014Q3

REPORT INFORMATION
  Report Type: Spontaneous
  Country: US (occurrence: US)
  Receive Date: 20130924
  Receipt Date: 20140820
  Transmission Date: 20150326
  Serious: Yes (Hospitalization)
  Sender: FDA-Public Use
  Company Number: US-009507513-1309USA008286

PATIENT
  Weight: 89.5 kg

DRUGS (1)
  1. NUVARING [Suspect]
     Active Substance: ETHINYL ESTRADIOL\ETONOGESTREL
     Indication: CONTRACEPTION
     Dosage: UNK
     Route: 067
     Dates: start: 200812, end: 200903

REACTIONS (5)
  - Deep vein thrombosis [Unknown]
  - Vena cava thrombosis [Unknown]
  - Venous thrombosis [Not Recovered/Not Resolved]
  - Peripheral venous disease [Unknown]
  - Thrombolysis [Unknown]

NARRATIVE: CASE EVENT DATE: 20090227
